FAERS Safety Report 9449838 (Version 1)
Quarter: 2013Q3

REPORT INFORMATION
  Report Type: Spontaneous
  Country: DE (occurrence: DE)
  Receive Date: 20130809
  Receipt Date: 20130809
  Transmission Date: 20140515
  Serious: Yes (Hospitalization)
  Sender: FDA-Public Use
  Company Number: PHHY2013DE085021

PATIENT
  Sex: Female

DRUGS (3)
  1. CARBAMAZEPINE [Suspect]
     Indication: EPILEPSY
     Dosage: LESS THAN 900 MG
  2. CARBAMAZEPINE [Suspect]
     Dosage: 900 MG, DAILY
  3. TOPAMAX [Concomitant]
     Indication: EPILEPSY
     Dosage: UNK UKN, UNK

REACTIONS (5)
  - Mental disorder [Unknown]
  - General physical health deterioration [Unknown]
  - Psychotic disorder [Unknown]
  - Hallucination [Unknown]
  - Cognitive disorder [Unknown]
